FAERS Safety Report 9122777 (Version 1)
Quarter: 2013Q1

REPORT INFORMATION
  Report Type: Spontaneous
  Country: US (occurrence: None)
  Receive Date: 20130225
  Receipt Date: 20130225
  Transmission Date: 20140127
  Serious: Yes (Hospitalization)
  Sender: FDA-Public Use
  Company Number: None

PATIENT
  Age: 70 Year
  Sex: Male
  Weight: 99.7 kg

DRUGS (4)
  1. BORTEZOMIB [Suspect]
     Indication: LYMPHOCYTIC LYMPHOMA
     Dosage: 3.6 MG Q 7 DAYS IV
     Route: 042
     Dates: start: 20120730, end: 20120917
  2. BORTEZOMIB [Suspect]
     Indication: CHRONIC LYMPHOCYTIC LEUKAEMIA
     Dosage: 3.6 MG Q 7 DAYS IV
     Route: 042
     Dates: start: 20120730, end: 20120917
  3. TEMSIROLIMUS [Suspect]
     Indication: LYMPHOCYTIC LEUKAEMIA
     Dosage: 25 MG Q 7 DAYS IV
     Route: 042
     Dates: start: 20120730, end: 20120917
  4. TEMSIROLIMUS [Suspect]
     Indication: CHRONIC LYMPHOCYTIC LEUKAEMIA
     Dosage: 25 MG Q 7 DAYS IV
     Route: 042
     Dates: start: 20120730, end: 20120917

REACTIONS (8)
  - White blood cell count increased [None]
  - Haemoglobin decreased [None]
  - Blood glucose increased [None]
  - Haematocrit decreased [None]
  - Platelet count decreased [None]
  - Protein total decreased [None]
  - Blood albumin decreased [None]
  - Urine leukocyte esterase positive [None]
